FAERS Safety Report 10694238 (Version 8)
Quarter: 2015Q1

REPORT INFORMATION
  Report Type: Report from Study
  Country: TW (occurrence: TW)
  Receive Date: 20150106
  Receipt Date: 20150309
  Transmission Date: 20150721
  Serious: Yes (Hospitalization)
  Sender: FDA-Public Use
  Company Number: TW-009507513-1412TWN001945

PATIENT
  Age: 48 Year
  Sex: Male
  Weight: 73.6 kg

DRUGS (3)
  1. PEMBROLIZUMAB. [Suspect]
     Active Substance: PEMBROLIZUMAB
     Dosage: 10 MG/KG, Q2W
     Route: 042
     Dates: start: 20141118, end: 20141118
  2. TELBIVUDINE [Suspect]
     Active Substance: TELBIVUDINE
     Indication: VIRAL HEPATITIS CARRIER
     Dosage: 600 MG, QD
     Route: 048
     Dates: start: 20140506, end: 20141217
  3. PEMBROLIZUMAB. [Suspect]
     Active Substance: PEMBROLIZUMAB
     Indication: NEOPLASM MALIGNANT
     Dosage: 10 MG/KG, Q2W
     Route: 042
     Dates: start: 20140603, end: 20141104

REACTIONS (2)
  - Blood creatine phosphokinase increased [Not Recovered/Not Resolved]
  - Hepatitis [Not Recovered/Not Resolved]

NARRATIVE: CASE EVENT DATE: 20141201
